FAERS Safety Report 6836086-4 (Version None)
Quarter: 2010Q3

REPORT INFORMATION
  Report Type: 
  Country: None (occurrence: None)
  Receive Date: 20100713
  Receipt Date: 20100126
  Transmission Date: 20110219
  Serious: Yes (Other)
  Sender: FDA-Public Use
  Company Number: DE-ROCHE-674733

PATIENT
  Sex: Female

DRUGS (3)
  1. TAMIFLU [Suspect]
     Indication: INFLUENZA
     Route: 048
     Dates: start: 20091214, end: 20091214
  2. TAMIFLU [Suspect]
     Route: 048
     Dates: start: 20091215
  3. ACETAMINOPHEN [Concomitant]
     Dates: start: 20091214

REACTIONS (4)
  - ABDOMINAL PAIN [None]
  - NAUSEA [None]
  - OVERDOSE [None]
  - VOMITING [None]
